FAERS Safety Report 25369944 (Version 1)
Quarter: 2025Q2

REPORT INFORMATION
  Report Type: Report from Study
  Country: CA (occurrence: CA)
  Receive Date: 20250528
  Receipt Date: 20250528
  Transmission Date: 20250716
  Serious: Yes (Death)
  Sender: TEVA
  Company Number: CA-TEVA-VS-3335720

PATIENT
  Age: 89 Year
  Sex: Female

DRUGS (1)
  1. TERIPARATIDE [Suspect]
     Active Substance: TERIPARATIDE
     Indication: Osteoporosis
     Dosage: DOSE: 20MCG
     Route: 058
     Dates: start: 20231020, end: 20250322

REACTIONS (1)
  - Death [Fatal]
